FAERS Safety Report 15147454 (Version 2)
Quarter: 2018Q3

REPORT INFORMATION
  Report Type: Spontaneous
  Country: ES (occurrence: ES)
  Receive Date: 20180716
  Receipt Date: 20180829
  Transmission Date: 20181010
  Serious: Yes (Other)
  Sender: FDA-Public Use
  Company Number: ES-009507513-1504ESP013384

PATIENT
  Age: 53 Year
  Sex: Male

DRUGS (5)
  1. CUBICIN [Suspect]
     Active Substance: DAPTOMYCIN
     Indication: ENDOCARDITIS STAPHYLOCOCCAL
     Dosage: 4 MG/KG, QD
     Route: 042
  2. CUBICIN [Suspect]
     Active Substance: DAPTOMYCIN
     Indication: OFF LABEL USE
     Dosage: 8 MG/KG, QD
     Route: 042
  3. CUBICIN [Suspect]
     Active Substance: DAPTOMYCIN
     Dosage: 10 MG/KG, QD
     Route: 042
  4. FOSFOMYCIN [Suspect]
     Active Substance: FOSFOMYCIN
     Indication: ENDOCARDITIS STAPHYLOCOCCAL
     Dosage: 2 G, QID
     Route: 042
  5. GENTAMICIN. [Suspect]
     Active Substance: GENTAMICIN
     Indication: ENDOCARDITIS STAPHYLOCOCCAL
     Dosage: 240 MG, Q48H
     Route: 042

REACTIONS (5)
  - Drug ineffective for unapproved indication [Recovered/Resolved]
  - Septic embolus [Unknown]
  - Foot amputation [Unknown]
  - Renal failure [Unknown]
  - Pyomyositis [Unknown]
